FAERS Safety Report 20407392 (Version 1)
Quarter: 2022Q1

REPORT INFORMATION
  Report Type: Spontaneous
  Country: CN (occurrence: CN)
  Receive Date: 20220131
  Receipt Date: 20220131
  Transmission Date: 20220424
  Serious: Yes (Other)
  Sender: FDA-Public Use
  Company Number: CN-PFIZER INC-202200123666

PATIENT
  Age: 21 Year
  Sex: Male
  Weight: 84 kg

DRUGS (4)
  1. CYTARABINE [Suspect]
     Active Substance: CYTARABINE
     Indication: Lymphoma
     Dosage: 2000.000 MG, 2X/DAY
     Route: 041
     Dates: start: 20220110, end: 20220111
  2. METHOTREXATE [Suspect]
     Active Substance: METHOTREXATE
     Indication: Lymphoma
     Dosage: 2.000 G, 1X/DAY
     Dates: start: 20220109, end: 20220109
  3. LEUCOVORIN CALCIUM [Concomitant]
     Active Substance: LEUCOVORIN CALCIUM
     Indication: Lymphoma
     Dosage: 0.100 G, 1X/DAY
     Route: 041
     Dates: start: 20220109, end: 20220113
  4. OU BEI [Concomitant]
     Indication: Adjuvant therapy
     Dosage: 8.000 MG, 2X/DAY
     Route: 041
     Dates: start: 20220109, end: 20220112

REACTIONS (2)
  - Hepatic function abnormal [Unknown]
  - Blood bilirubin increased [Unknown]

NARRATIVE: CASE EVENT DATE: 20220111
